FAERS Safety Report 9357662 (Version 1)
Quarter: 2013Q2

REPORT INFORMATION
  Report Type: Spontaneous
  Country: US (occurrence: US)
  Receive Date: 20130620
  Receipt Date: 20130620
  Transmission Date: 20140414
  Serious: Yes (Death)
  Sender: FDA-Public Use
  Company Number: US-PFIZER INC-2013183943

PATIENT
  Age: 64 Year
  Sex: Female

DRUGS (1)
  1. GEODON [Suspect]
     Indication: SCHIZOPHRENIA
     Dosage: 160 MG, 1X/DAY (2 ORAL CAPSULES OF 80MG ONCE A DAY)
     Route: 048

REACTIONS (1)
  - Chronic obstructive pulmonary disease [Fatal]
